FAERS Safety Report 25763676 (Version 1)
Quarter: 2025Q3

REPORT INFORMATION
  Report Type: Spontaneous
  Country: US (occurrence: US)
  Receive Date: 20250905
  Receipt Date: 20250905
  Transmission Date: 20251021
  Serious: No
  Sender: DOMPE FARMACEUTICI
  Company Number: US-FARMAPROD-202410-3658

PATIENT
  Sex: Female

DRUGS (21)
  1. OXERVATE [Suspect]
     Active Substance: CENEGERMIN-BKBJ
     Indication: Neurotrophic keratopathy
     Route: 047
     Dates: start: 20241008
  2. OXERVATE [Suspect]
     Active Substance: CENEGERMIN-BKBJ
     Indication: Hypoaesthesia eye
  3. LEXAPRO [Concomitant]
     Active Substance: ESCITALOPRAM OXALATE
  4. CARVEDILOL [Concomitant]
     Active Substance: CARVEDILOL
  5. VALSARTAN [Concomitant]
     Active Substance: VALSARTAN
  6. ATIVAN [Concomitant]
     Active Substance: LORAZEPAM
  7. PROBIOTICS NOS [Concomitant]
     Active Substance: PROBIOTICS NOS
  8. CRANBERRY [Concomitant]
     Active Substance: CRANBERRY
  9. ZYRTEC [Concomitant]
     Active Substance: CETIRIZINE HYDROCHLORIDE
  10. ATORVASTATIN CALCIUM [Concomitant]
     Active Substance: ATORVASTATIN CALCIUM
  11. VITAMIN D3 [Concomitant]
     Active Substance: CHOLECALCIFEROL
  12. COLACE [Concomitant]
     Active Substance: DOCUSATE SODIUM
  13. LOSARTAN POTASSIUM [Concomitant]
     Active Substance: LOSARTAN POTASSIUM
  14. BENEFIBER [Concomitant]
     Active Substance: STARCH, WHEAT
  15. LACTULOSE [Concomitant]
     Active Substance: LACTULOSE
  16. PEPCID [Concomitant]
     Active Substance: FAMOTIDINE
  17. REFRESH OPTIVE ADVANCED [Concomitant]
     Active Substance: CARBOXYMETHYLCELLULOSE SODIUM\GLYCERIN\POLYSORBATE 80
  18. RESTASIS [Concomitant]
     Active Substance: CYCLOSPORINE
  19. TIMOLOL MALEATE [Concomitant]
     Active Substance: TIMOLOL MALEATE
  20. PREDNISOLONE [Concomitant]
     Active Substance: PREDNISOLONE
  21. VALTREX [Concomitant]
     Active Substance: VALACYCLOVIR HYDROCHLORIDE

REACTIONS (7)
  - Eyelid pain [Not Recovered/Not Resolved]
  - Swelling of eyelid [Not Recovered/Not Resolved]
  - Erythema of eyelid [Not Recovered/Not Resolved]
  - Eye pain [Unknown]
  - Eye irritation [Unknown]
  - Foreign body sensation in eyes [Unknown]
  - Treatment noncompliance [Unknown]
